FAERS Safety Report 11577047 (Version 1)
Quarter: 2015Q3

REPORT INFORMATION
  Report Type: Spontaneous
  Country: US (occurrence: US)
  Receive Date: 20150916
  Receipt Date: 20150916
  Transmission Date: 20151125
  Serious: No
  Sender: FDA-Public Use
  Company Number: US-ELI_LILLY_AND_COMPANY-US201306000438

PATIENT
  Sex: Male

DRUGS (1)
  1. HUMALOG [Suspect]
     Active Substance: INSULIN LISPRO
     Indication: DIABETES MELLITUS
     Dosage: UNK
     Dates: start: 2012

REACTIONS (5)
  - Confusional state [Unknown]
  - Depressed mood [Unknown]
  - Astigmatism [Unknown]
  - Frustration [Unknown]
  - Anger [Unknown]

NARRATIVE: CASE EVENT DATE: 20130531
